FAERS Safety Report 16381872 (Version 1)
Quarter: 2019Q2

REPORT INFORMATION
  Report Type: Spontaneous
  Country: GB (occurrence: GB)
  Receive Date: 20190603
  Receipt Date: 20190603
  Transmission Date: 20190711
  Serious: Yes (Disabling, Other)
  Sender: FDA-Public Use
  Company Number: GB-TEVA-2019-GB-1057111

PATIENT
  Age: 37 Year
  Sex: Female
  Weight: 58 kg

DRUGS (3)
  1. ANTIHISTAMINES [Concomitant]
     Active Substance: ANTIHISTAMINES NOS
     Dosage: 1 DOSAGE FORMS DAILY;
  2. PREDNISOLONE. [Suspect]
     Active Substance: PREDNISOLONE
     Indication: PRURITUS GENERALISED
     Dosage: 8 DOSAGE FORMS DAILY;
     Route: 048
     Dates: start: 20190417, end: 20190421
  3. NEOCLARITYN [Suspect]
     Active Substance: DESLORATADINE
     Indication: PRURITUS GENERALISED
     Route: 048
     Dates: start: 20190425, end: 20190426

REACTIONS (2)
  - Rash [Not Recovered/Not Resolved]
  - Condition aggravated [Unknown]

NARRATIVE: CASE EVENT DATE: 20190425
